FAERS Safety Report 11699752 (Version 1)
Quarter: 2015Q4

REPORT INFORMATION
  Report Type: Spontaneous
  Country: US (occurrence: None)
  Receive Date: 20151104
  Receipt Date: 20151104
  Transmission Date: 20160304
  Serious: Yes (Death)
  Sender: FDA-Public Use
  Company Number: None

PATIENT
  Age: 64 Year
  Sex: Female

DRUGS (7)
  1. VITAMIN D3 [Concomitant]
     Active Substance: CHOLECALCIFEROL
  2. OMEPRAZOLE. [Concomitant]
     Active Substance: OMEPRAZOLE
  3. ZOMETA [Concomitant]
     Active Substance: ZOLEDRONIC ACID
  4. CITALOPRAM [Concomitant]
     Active Substance: CITALOPRAM HYDROBROMIDE
  5. EXEMESTANE. [Concomitant]
     Active Substance: EXEMESTANE
  6. SIMVASTATIN. [Concomitant]
     Active Substance: SIMVASTATIN
  7. AFINITOR [Suspect]
     Active Substance: EVEROLIMUS
     Indication: BREAST CANCER
     Route: 048
     Dates: start: 20150613

REACTIONS (1)
  - Death [None]

NARRATIVE: CASE EVENT DATE: 20151030
